FAERS Safety Report 14964911 (Version 1)
Quarter: 2018Q2

REPORT INFORMATION
  Report Type: Spontaneous
  Country: CO (occurrence: CO)
  Receive Date: 20180601
  Receipt Date: 20180601
  Transmission Date: 20180711
  Serious: Yes (Other)
  Sender: FDA-Public Use
  Company Number: CO-CELGENEUS-COL-20180509296

PATIENT
  Age: 53 Year
  Sex: Female

DRUGS (1)
  1. ABRAXANE [Suspect]
     Active Substance: PACLITAXEL
     Indication: BREAST CANCER
     Dosage: 100 MILLIGRAM
     Route: 041
     Dates: start: 20180211, end: 20180421

REACTIONS (3)
  - Back pain [Unknown]
  - Pain in extremity [Unknown]
  - Breast inflammation [Unknown]

NARRATIVE: CASE EVENT DATE: 20180503
